FAERS Safety Report 9995613 (Version 1)
Quarter: 2014Q1

REPORT INFORMATION
  Report Type: Spontaneous
  Country: US (occurrence: None)
  Receive Date: 20140307
  Receipt Date: 20140307
  Transmission Date: 20141002
  Serious: Yes (Death)
  Sender: FDA-Public Use
  Company Number: None

PATIENT
  Age: 80 Year
  Sex: Male

DRUGS (9)
  1. LETAIRIS [Suspect]
     Indication: PULMONARY ARTERIAL HYPERTENSION
     Route: 048
     Dates: start: 200804, end: 201402
  2. TRIAMTERENE/HCTZ [Concomitant]
  3. KCL [Concomitant]
  4. FUROSEMIDE [Concomitant]
  5. GABAPENTIN [Concomitant]
  6. WARFARIN [Concomitant]
  7. ALLOPURINOL [Concomitant]
  8. HYDROCODONE/APAP [Concomitant]
  9. SILDENAFIL [Concomitant]

REACTIONS (3)
  - Melaena [None]
  - Fatigue [None]
  - Abdominal discomfort [None]
